FAERS Safety Report 8102605-3 (Version None)
Quarter: 2012Q1

REPORT INFORMATION
  Report Type: 
  Country: None (occurrence: None)
  Receive Date: 20120201
  Receipt Date: 20120124
  Transmission Date: 20120608
  Serious: Yes (Other)
  Sender: FDA-Public Use
  Company Number: US-US-EMD SERONO, INC.-7109120

PATIENT
  Sex: Female

DRUGS (4)
  1. REBIF [Suspect]
     Route: 058
  2. NAPROXEN (ALEVE) [Concomitant]
     Indication: PREMEDICATION
  3. REBIF [Suspect]
     Indication: PRODUCT USED FOR UNKNOWN INDICATION
     Route: 058
     Dates: start: 20110705
  4. IBUPROFEN [Concomitant]
     Indication: PREMEDICATION

REACTIONS (3)
  - OPTIC NEURITIS [None]
  - HEADACHE [None]
  - UNEVALUABLE EVENT [None]
